FAERS Safety Report 7470887-7 (Version None)
Quarter: 2011Q2

REPORT INFORMATION
  Report Type: 
  Country: None (occurrence: None)
  Receive Date: 20110506
  Receipt Date: 20110506
  Transmission Date: 20111010
  Serious: Yes (Life-Threatening, Hospitalization)
  Sender: FDA-Public Use
  Company Number: None

PATIENT
  Sex: Female
  Weight: 68.0396 kg

DRUGS (2)
  1. RITUXAN [Suspect]
     Indication: SJOGREN'S SYNDROME
     Dosage: 11/29/10 + 12/6/10 IV INFUSION
     Dates: start: 20101206
  2. RITUXAN [Suspect]
     Indication: SJOGREN'S SYNDROME
     Dosage: 11/29/10 + 12/6/10 IV INFUSION
     Dates: start: 20101129

REACTIONS (3)
  - TOXICITY TO VARIOUS AGENTS [None]
  - DEPRESSION [None]
  - SUICIDE ATTEMPT [None]
